FAERS Safety Report 15195736 (Version 1)
Quarter: 2018Q3

REPORT INFORMATION
  Report Type: Spontaneous
  Country: FR (occurrence: FR)
  Receive Date: 20180725
  Receipt Date: 20180725
  Transmission Date: 20181010
  Serious: Yes (Other)
  Sender: FDA-Public Use
  Company Number: FR-PFIZER INC-2018292608

PATIENT
  Age: 77 Year
  Sex: Female
  Weight: 44 kg

DRUGS (3)
  1. MODOPAR [Suspect]
     Active Substance: BENSERAZIDE HYDROCHLORIDE\LEVODOPA
     Indication: PARKINSON^S DISEASE
     Dosage: 562.5 MG, 1X/DAY
     Route: 048
     Dates: start: 201607
  2. TAHOR [Suspect]
     Active Substance: ATORVASTATIN CALCIUM
     Dosage: 10 MG, 1X/DAY
     Route: 048
     Dates: start: 201607
  3. PREVISCAN /00261401/ [Suspect]
     Active Substance: PENTOXIFYLLINE
     Dosage: 5 MG, 1X/DAY
     Route: 048
     Dates: start: 201607

REACTIONS (1)
  - Jaundice cholestatic [Not Recovered/Not Resolved]

NARRATIVE: CASE EVENT DATE: 201702
